FAERS Safety Report 17570867 (Version 1)
Quarter: 2020Q1

REPORT INFORMATION
  Report Type: Spontaneous
  Country: GB (occurrence: GB)
  Receive Date: 20200323
  Receipt Date: 20200323
  Transmission Date: 20200409
  Serious: Yes (Other)
  Sender: FDA-Public Use
  Company Number: GB-AUROBINDO-AUR-APL-2018-060505

PATIENT
  Age: 25 Year
  Sex: Male

DRUGS (5)
  1. ARIPIPRAZOLE TABLETS 15 MG [Suspect]
     Active Substance: ARIPIPRAZOLE
     Indication: PSYCHOTIC DISORDER
     Dosage: 15 MILLIGRAM, ONCE A DAY
     Route: 048
     Dates: start: 2018
  2. ARIPIPRAZOLE TABLETS 15 MG [Suspect]
     Active Substance: ARIPIPRAZOLE
     Indication: SCHIZOPHRENIA
     Dosage: 5 MILLIGRAM, ONCE A DAY
     Route: 048
     Dates: start: 201808
  3. CHLORPROMAZINE. [Concomitant]
     Active Substance: CHLORPROMAZINE
     Indication: BRAIN INJURY
     Dosage: UNK, OCCASIONAL LOW DOSE USE AS NECESSARY
     Route: 065
  4. CHLORPROMAZINE. [Concomitant]
     Active Substance: CHLORPROMAZINE
     Indication: PSYCHOTIC DISORDER
  5. ARIPIPRAZOLE TABLETS 15 MG [Suspect]
     Active Substance: ARIPIPRAZOLE
     Indication: BRAIN INJURY
     Dosage: 10 MILLIGRAM, ONCE A DAY
     Route: 048
     Dates: start: 2018

REACTIONS (4)
  - Incorrect dose administered [Unknown]
  - Tardive dyskinesia [Recovered/Resolved]
  - Akathisia [Recovered/Resolved]
  - Vision blurred [Recovered/Resolved]

NARRATIVE: CASE EVENT DATE: 2018
